FAERS Safety Report 5517711-7 (Version None)
Quarter: 2007Q4

REPORT INFORMATION
  Report Type: 
  Country: None (occurrence: None)
  Receive Date: 20071113
  Receipt Date: 20071026
  Transmission Date: 20080405
  Serious: Yes (Death)
  Sender: FDA-Public Use
  Company Number: 2007002096

PATIENT
  Sex: Female
  Weight: 71.6 kg

DRUGS (2)
  1. ERLOTINIB (ERLOTINIB HCI) (TABLET) (ERLOTINIB HCI) [Suspect]
     Indication: LUNG NEOPLASM MALIGNANT
     Dosage: 150 MG, QD, ORAL
     Route: 048
     Dates: start: 20070817, end: 20070928
  2. BEVACIZUMAB (INJECTION FOR INFUSION) [Suspect]
     Dosage: 1149 MG, Q3W, INTRAVENOUS
     Route: 042
     Dates: start: 20070811

REACTIONS (1)
  - HOSPITALISATION [None]
